FAERS Safety Report 10100998 (Version 2)
Quarter: 2014Q2

REPORT INFORMATION
  Report Type: Spontaneous
  Country: DE (occurrence: DE)
  Receive Date: 20140424
  Receipt Date: 20140602
  Transmission Date: 20141212
  Serious: Yes (Other)
  Sender: FDA-Public Use
  Company Number: DE-BIOGENIDEC-2014BI037272

PATIENT
  Age: 48 Year
  Sex: Female
  Weight: 62 kg

DRUGS (2)
  1. AVONEX [Suspect]
     Indication: MULTIPLE SCLEROSIS
     Route: 030
     Dates: start: 20110117
  2. INTERFERON ALPHA [Concomitant]

REACTIONS (4)
  - Serum ferritin increased [Unknown]
  - Thyroiditis [Unknown]
  - Migraine without aura [Unknown]
  - Hypothyroidism [Unknown]
